FAERS Safety Report 5278452-7 (Version None)
Quarter: 2007Q1

REPORT INFORMATION
  Report Type: 
  Country: None (occurrence: None)
  Receive Date: 20070322
  Receipt Date: 20070306
  Transmission Date: 20070707
  Serious: Yes (Hospitalization)
  Sender: FDA-Public Use
  Company Number: GXBR2007US00743

PATIENT
  Age: 49 Year
  Sex: Female
  Weight: 52.2 kg

DRUGS (5)
  1. CLONAZEPAM [Suspect]
     Indication: INSOMNIA
     Dosage: SEE IMAGE
     Route: 048
     Dates: start: 20050501, end: 20050901
  2. CLONAZEPAM [Suspect]
     Indication: INSOMNIA
     Dosage: SEE IMAGE
     Route: 048
     Dates: start: 20060801, end: 20060901
  3. CLONAZEPAM [Suspect]
     Indication: INSOMNIA
     Dosage: SEE IMAGE
     Route: 048
     Dates: start: 20050901
  4. DIAZEPAM [Suspect]
     Indication: SLEEP DISORDER
     Dosage: SEE IMGE
     Route: 048
     Dates: end: 20060401
  5. DIAZEPAM [Suspect]
     Indication: SLEEP DISORDER
     Dosage: SEE IMGE
     Route: 048
     Dates: start: 20060401, end: 20060501

REACTIONS (26)
  - ANOREXIA [None]
  - ANXIETY [None]
  - BURNING SENSATION [None]
  - DEPRESSION [None]
  - DISTURBANCE IN ATTENTION [None]
  - DRUG DEPENDENCE [None]
  - DRUG WITHDRAWAL SYNDROME [None]
  - EATING DISORDER [None]
  - HEAD DISCOMFORT [None]
  - HYPOAESTHESIA FACIAL [None]
  - IMPAIRED WORK ABILITY [None]
  - INSOMNIA [None]
  - INTERVERTEBRAL DISC PROTRUSION [None]
  - MUSCLE SPASMS [None]
  - MYOCLONUS [None]
  - NERVOUS SYSTEM DISORDER [None]
  - PARAESTHESIA [None]
  - SEDATION [None]
  - SENSORY DISTURBANCE [None]
  - SKIN BURNING SENSATION [None]
  - SUICIDAL IDEATION [None]
  - TINNITUS [None]
  - TREMOR [None]
  - TRIGEMINAL NEURALGIA [None]
  - VISION BLURRED [None]
  - WEIGHT DECREASED [None]
